FAERS Safety Report 8209125-6 (Version None)
Quarter: 2012Q1

REPORT INFORMATION
  Report Type: 
  Country: None (occurrence: None)
  Receive Date: 20120314
  Receipt Date: 20120302
  Transmission Date: 20120608
  Serious: Yes (Hospitalization)
  Sender: FDA-Public Use
  Company Number: NL-BAYER-2012-021245

PATIENT
  Sex: Male
  Weight: 81 kg

DRUGS (8)
  1. ASPIRIN [Interacting]
     Indication: THROMBOSIS PROPHYLAXIS
     Dosage: DAILY DOSE 80 MG
     Route: 048
     Dates: start: 20020101
  2. HEPARIN [Suspect]
     Indication: PERCUTANEOUS CORONARY INTERVENTION
     Dosage: 4050 IU, UNK
     Dates: start: 20120228, end: 20120228
  3. SIMVASTATIN [Concomitant]
     Indication: HYPERCHOLESTEROLAEMIA
     Dosage: DAILY DOSE 40 MG
     Route: 048
  4. RIVAROXABAN [Interacting]
     Indication: PERCUTANEOUS CORONARY INTERVENTION
     Dosage: 1 DF, ONCE
     Route: 048
     Dates: start: 20120228, end: 20120228
  5. BISOPROLOL FUMARATE [Concomitant]
     Indication: ANGINA PECTORIS
     Dosage: DAILY DOSE 2.5 MG
     Route: 048
  6. ESOMEPRAZOLE SODIUM [Concomitant]
     Indication: PROPHYLAXIS
     Dosage: DAILY DOSE 40 MG
     Route: 048
  7. CLOPIDOGREL [Interacting]
     Indication: THROMBOSIS PROPHYLAXIS
     Dosage: DAILY DOSE 75 MG
     Route: 048
     Dates: start: 20120221
  8. PERINDOPRIL ERBUMINE [Concomitant]
     Indication: ANGINA PECTORIS
     Dosage: DAILY DOSE 4 MG
     Route: 048

REACTIONS (1)
  - INCISION SITE HAEMORRHAGE [None]
